FAERS Safety Report 9602879 (Version 3)
Quarter: 2014Q1

REPORT INFORMATION
  Report Type: Spontaneous
  Country: US (occurrence: None)
  Receive Date: 20131001
  Receipt Date: 20140115
  Transmission Date: 20141002
  Serious: Yes (Hospitalization, Other)
  Sender: FDA-Public Use
  Company Number: 2012-003588

PATIENT
  Age: 52 Year
  Sex: Female
  Weight: 91.6 kg

DRUGS (39)
  1. ACTONEL [Suspect]
     Indication: OSTEOPOROSIS
     Dosage: 35 MG ONCE WEEKLY, ORAL
     Route: 048
     Dates: start: 20040623, end: 200701
  2. RISEDRONATE SODIUM [Suspect]
     Indication: OSTEOPOROSIS
  3. FOSAMAX [Suspect]
     Indication: OSTEOPOROSIS
     Dosage: 35 MG ONCE WEEKLY, ORAL
     Route: 048
     Dates: start: 20040211, end: 200406
  4. FOSAMAX D [Suspect]
     Indication: OSTEOPOROSIS
  5. ALENDRONATE SODIUM (ALENDRONATE SODIUM) (ALENDRONATE SODIUM) [Suspect]
     Indication: OSTEOPOROSIS
  6. BONIVA [Suspect]
     Indication: OSTEOPOROSIS
     Dosage: 150 MG ONCE MONTHLY, ORAL
     Route: 048
     Dates: start: 20080212
  7. IBANDRONATE SODIUM [Suspect]
     Indication: OSTEOPOROSIS
  8. DELTASONE (PREDNISONE) [Concomitant]
  9. PLAQUENIL (HYDROXYCHLOROQUINE PHOSPHATE) [Concomitant]
  10. ARAVA (LEFLUNOMIDE) [Concomitant]
  11. CELLCEPT (MYCOPHENOLATE MOFETIL) [Concomitant]
  12. PROMETRIUM (PROGESTERONE) [Concomitant]
  13. CELEBREX (CELECOXIB) [Concomitant]
  14. ZANAFLEX (TIZANIDINE HYDROCHLORIDE) [Concomitant]
  15. ULTRAM (TRAMADOL HYDROCHLORIDE) [Concomitant]
  16. DARVOCET-N (DEXTROPROPOXYPHENE NAPSILATE, PARACETAMOL) [Concomitant]
  17. LORTAB (HYDROCODONE BITARTRATE, PARACETAMOL) [Concomitant]
  18. PRILOSEC (OMEPRAZOLE) [Concomitant]
  19. NEXIUM (ESOMEPRAZOLE MAGNESIUM) [Concomitant]
  20. COMPAZINE (PROCHLORPERAZINE EDISYLATE) [Concomitant]
  21. HYDROCHLOROTHIAZIDE (HYDROCHLOROTHIAZIDE) [Concomitant]
  22. ATENOLOL (ATENOLOL) [Concomitant]
  23. POTASSIUM CHLORIDE (POTASSIUM CHLORIDE) [Concomitant]
  24. TRIAMCINOLONE ACETONIDE (TRIAMCINOLONE ACETONIDE) [Concomitant]
  25. COMBIVENT (IPRATROPIUM BROMIDE, SALBUTAMOL SULFATE) [Concomitant]
  26. ALLEGRA-D 12 HOUR (FEXOFENADINE HYDROCHLORIDE, PSEUDOEPHEDRINE HYDROCHLORIDE) [Concomitant]
  27. AMBIEN (ZOLPIDEM TARTRATE) [Concomitant]
  28. PROZAC (FLUOXETINE HYDROCHLORIDE) [Concomitant]
  29. MAXALT (RIZATRIPTAN) [Concomitant]
  30. NEURONTIN (GABAPENTIN) [Concomitant]
  31. PYRIDIUM PLUS (HYOSCYAMINE HYDROBROMIDE, PHENAZOPYRIDINE HYDROCHLORIDE, SECBUTABARBITAL) [Concomitant]
  32. ELMIRON (PENTOSAN POLYSULFATE SODIUM) [Concomitant]
  33. Z-PAK (AZITHROMYCIN) [Concomitant]
  34. VICODIN TUSS (GUAIFENESIN, HYDROCODONE BITARTRATE) [Concomitant]
  35. VALTREX (VALACICLOVIR HYDROCHLORIDE) [Concomitant]
  36. FERROUS SULFATE (FERROUS SULFATE) [Concomitant]
  37. ROCALTROL (CALCITRIOL) [Concomitant]
  38. CALCIUM (CALCIUM) [Concomitant]
  39. VITAMIN D (COLECALCIFEROL) [Concomitant]

REACTIONS (18)
  - Pathological fracture [None]
  - Femur fracture [None]
  - Fracture nonunion [None]
  - Device breakage [None]
  - Complication of device removal [None]
  - Osteopetrosis [None]
  - Pain in extremity [None]
  - Low turnover osteopathy [None]
  - Atypical femur fracture [None]
  - Fracture displacement [None]
  - Skeletal injury [None]
  - Pain [None]
  - Dyspepsia [None]
  - Bursitis [None]
  - Vitamin D decreased [None]
  - Stress fracture [None]
  - Abdominal discomfort [None]
  - Fall [None]
